FAERS Safety Report 9785396 (Version 1)
Quarter: 2013Q4

REPORT INFORMATION
  Report Type: Spontaneous
  Country: US (occurrence: None)
  Receive Date: 20131226
  Receipt Date: 20131226
  Transmission Date: 20140711
  Serious: No
  Sender: FDA-Public Use
  Company Number: None

PATIENT
  Age: 64 Year
  Sex: Female
  Weight: 108.86 kg

DRUGS (8)
  1. AMITIZA LOBIPROSTONE [Suspect]
     Indication: CONSTIPATION
     Dosage: 25 MCG?1-TAB-AM?ONCE?10 PILLS
     Dates: start: 20131105, end: 20131114
  2. CELERREX [Concomitant]
  3. CHLORTHAILD [Concomitant]
  4. SYNTHROID [Concomitant]
  5. Q-VAR [Concomitant]
  6. LOSARTAN [Concomitant]
  7. CRANBERRY [Concomitant]
  8. VITAMIN C [Concomitant]

REACTIONS (5)
  - Nausea [None]
  - Headache [None]
  - Diarrhoea [None]
  - Joint swelling [None]
  - Swelling [None]
